FAERS Safety Report 17529166 (Version 1)
Quarter: 2020Q1

REPORT INFORMATION
  Report Type: Spontaneous
  Country: US (occurrence: US)
  Receive Date: 20200312
  Receipt Date: 20200312
  Transmission Date: 20200409
  Serious: No
  Sender: FDA-Public Use
  Company Number: US-SHIRE-US202009266

PATIENT
  Age: 57 Year
  Sex: Female

DRUGS (4)
  1. FIRAZYR [Suspect]
     Active Substance: ICATIBANT ACETATE
     Indication: HEREDITARY ANGIOEDEMA
     Dosage: 30 MILLIGRAM, AS REQ^D
     Route: 058
     Dates: start: 20180723
  2. FIRAZYR [Suspect]
     Active Substance: ICATIBANT ACETATE
     Indication: PROPHYLAXIS
  3. CINRYZE [Suspect]
     Active Substance: HUMAN C1-ESTERASE INHIBITOR
     Indication: HEREDITARY ANGIOEDEMA
     Dosage: 1000 INTERNATIONAL UNIT, OTHER
     Route: 042
     Dates: start: 20180809
  4. CINRYZE [Suspect]
     Active Substance: HUMAN C1-ESTERASE INHIBITOR
     Indication: PROPHYLAXIS

REACTIONS (2)
  - Inappropriate schedule of product administration [Recovering/Resolving]
  - Hereditary angioedema [Recovered/Resolved]

NARRATIVE: CASE EVENT DATE: 20200228
